FAERS Safety Report 10038950 (Version 1)
Quarter: 2014Q1

REPORT INFORMATION
  Report Type: Spontaneous
  Country: US (occurrence: None)
  Receive Date: 20140306
  Receipt Date: 20140306
  Transmission Date: 20141002
  Serious: Yes (Life-Threatening, Hospitalization, Other)
  Sender: FDA-Public Use
  Company Number: 163-21880-13061385

PATIENT
  Age: 55 Year
  Sex: Male
  Weight: 94 kg

DRUGS (6)
  1. REVLIMID (LENALIDOMIDE) (10 MILLIGRAM, CAPSULES) [Suspect]
     Indication: PLASMA CELL MYELOMA
     Dosage: 10 MG, 21 IN 28 D, PO
     Route: 048
     Dates: start: 20090610
  2. PREDNISONE (PREDNSIONE) [Concomitant]
  3. ADVAIR DISKUS [Concomitant]
  4. PROAIR HFA (SALBUTAMOL SULFATE) [Concomitant]
  5. VITAMIN B12 (CYANOCOBALAMIN) [Concomitant]
  6. TEMAZEPAM (TEMAZEPAM) [Concomitant]

REACTIONS (2)
  - Thrombosis [None]
  - Thrombosis [None]
